FAERS Safety Report 12973811 (Version 2)
Quarter: 2017Q1

REPORT INFORMATION
  Report Type: Spontaneous
  Country: US (occurrence: US)
  Receive Date: 20161124
  Receipt Date: 20170203
  Transmission Date: 20170428
  Serious: Yes (Hospitalization, Other)
  Sender: FDA-Public Use
  Company Number: US-BRISTOL-MYERS SQUIBB COMPANY-BMS-2016-098347

PATIENT
  Age: 75 Year
  Sex: Male

DRUGS (1)
  1. YERVOY [Suspect]
     Active Substance: IPILIMUMAB
     Indication: MALIGNANT MELANOMA
     Dosage: 863 MG, Q3WK
     Route: 042
     Dates: start: 20160908, end: 20161110

REACTIONS (3)
  - Enterocolitis [Recovered/Resolved]
  - Acute kidney injury [Unknown]
  - Atelectasis [Unknown]

NARRATIVE: CASE EVENT DATE: 20161023
